FAERS Safety Report 5300455-4 (Version None)
Quarter: 2007Q2

REPORT INFORMATION
  Report Type: 
  Country: None (occurrence: None)
  Receive Date: 20070418
  Receipt Date: 20070404
  Transmission Date: 20071010
  Serious: Yes (Life-Threatening)
  Sender: FDA-Public Use
  Company Number: 200510088EU

PATIENT
  Age: 1 Day
  Sex: Female
  Weight: 4 kg

DRUGS (3)
  1. RIFINAH [Suspect]
     Indication: PULMONARY TUBERCULOSIS
     Route: 064
     Dates: start: 20040212, end: 20040811
  2. RIFINAH [Suspect]
     Route: 064
     Dates: start: 20040212, end: 20040811
  3. MYAMBUTOL [Concomitant]
     Route: 064
     Dates: start: 20040212, end: 20040811

REACTIONS (2)
  - CEREBRAL HAEMORRHAGE NEONATAL [None]
  - SHOCK HAEMORRHAGIC [None]
